FAERS Safety Report 11251943 (Version 1)
Quarter: 2015Q3

REPORT INFORMATION
  Report Type: Spontaneous
  Country: US (occurrence: US)
  Receive Date: 20150708
  Receipt Date: 20150708
  Transmission Date: 20151125
  Serious: Yes (Other)
  Sender: FDA-Public Use
  Company Number: US-ELI_LILLY_AND_COMPANY-US201210004395

PATIENT
  Sex: Female

DRUGS (2)
  1. DOCETAXEL. [Concomitant]
     Active Substance: DOCETAXEL
     Indication: NEOPLASM MALIGNANT
     Dosage: UNK
     Route: 065
  2. GEMZAR [Suspect]
     Active Substance: GEMCITABINE HYDROCHLORIDE
     Indication: NEOPLASM MALIGNANT
     Dosage: UNK
     Route: 065

REACTIONS (2)
  - Supraventricular tachycardia [Unknown]
  - Cancer pain [Unknown]
